FAERS Safety Report 9865407 (Version 2)
Quarter: 2014Q1

REPORT INFORMATION
  Report Type: Spontaneous
  Country: US (occurrence: US)
  Receive Date: 20140203
  Receipt Date: 20140203
  Transmission Date: 20141002
  Serious: No
  Sender: FDA-Public Use
  Company Number: US-ALLERGAN-1303215US

PATIENT
  Age: 65 Year
  Sex: Female

DRUGS (13)
  1. RESTASIS [Suspect]
     Indication: DRY EYE
     Dosage: 2 GTT, BID
     Route: 047
     Dates: start: 20130206, end: 20130311
  2. ACYCLOVIR                          /00587301/ [Concomitant]
     Indication: GENITAL HERPES
     Dosage: 500 MG, UNK
     Route: 048
  3. METFORMIN [Concomitant]
     Indication: DIABETES MELLITUS
     Dosage: 500 MG, UNK
     Route: 048
  4. PANTOPRAZOLE [Concomitant]
     Indication: GASTROOESOPHAGEAL REFLUX DISEASE
  5. GENERIC SINGULAIR [Concomitant]
     Indication: PRODUCT USED FOR UNKNOWN INDICATION
  6. DOXEPIN [Concomitant]
     Indication: SLEEP DISORDER
  7. GENERIC AMBIEN [Concomitant]
     Indication: SLEEP DISORDER
  8. FLUROMETHOLONE 0.01% DROPS [Concomitant]
     Indication: PRODUCT USED FOR UNKNOWN INDICATION
  9. THERATEARS SUPPLEMENT [Concomitant]
     Indication: PRODUCT USED FOR UNKNOWN INDICATION
  10. FIBERCON                           /00567701/ [Concomitant]
     Indication: PRODUCT USED FOR UNKNOWN INDICATION
  11. PHILLIPS CAPLETS [Concomitant]
     Indication: PRODUCT USED FOR UNKNOWN INDICATION
     Dosage: UNK
     Route: 047
  12. STOOL SOFTNER [Concomitant]
     Indication: PRODUCT USED FOR UNKNOWN INDICATION
  13. CONCENTRATED BERRY CAPLETS [Concomitant]
     Indication: PRODUCT USED FOR UNKNOWN INDICATION

REACTIONS (8)
  - Skin burning sensation [Recovered/Resolved]
  - Pruritus [Recovered/Resolved]
  - Condition aggravated [Recovered/Resolved]
  - Extraocular muscle paresis [Recovered/Resolved]
  - Foreign body sensation in eyes [Recovered/Resolved]
  - Eye pain [Recovered/Resolved]
  - Eye pruritus [Recovered/Resolved]
  - Eye irritation [Recovered/Resolved]
